FAERS Safety Report 10258315 (Version 1)
Quarter: 2014Q2

REPORT INFORMATION
  Report Type: Spontaneous
  Country: GB (occurrence: GB)
  Receive Date: 20140625
  Receipt Date: 20140625
  Transmission Date: 20141212
  Serious: Yes (Other)
  Sender: FDA-Public Use
  Company Number: GB-MYLANLABS-2014S1013980

PATIENT
  Sex: Male

DRUGS (7)
  1. ATORVASTATIN [Suspect]
     Dosage: 40 MILLIGRAM DAILY;
     Route: 065
  2. ATORVASTATIN [Suspect]
     Dosage: 80 MILLIGRAM DAILY;
     Route: 065
  3. BISOPROLOL [Suspect]
     Route: 065
  4. BISOPROLOL [Suspect]
     Route: 065
  5. ALLOPURINOL [Suspect]
     Route: 065
  6. AMIAS [Suspect]
     Route: 065
  7. ASPIRIN [Suspect]
     Dosage: 75 MILLIGRAM DAILY; NON-DISPERSIBLE
     Route: 065

REACTIONS (3)
  - Loss of consciousness [Unknown]
  - High density lipoprotein decreased [Unknown]
  - Malaise [Unknown]
